FAERS Safety Report 19389333 (Version 1)
Quarter: 2021Q2

REPORT INFORMATION
  Report Type: Spontaneous
  Country: US (occurrence: US)
  Receive Date: 20210608
  Receipt Date: 20210608
  Transmission Date: 20210717
  Serious: Yes (Hospitalization)
  Sender: FDA-Public Use
  Company Number: None

PATIENT
  Sex: Male
  Weight: 72.8 kg

DRUGS (4)
  1. METHOTREXATE. [Concomitant]
     Active Substance: METHOTREXATE
  2. ETOPOSIDE (VP?16) [Concomitant]
     Active Substance: ETOPOSIDE
  3. CYTARABINE. [Suspect]
     Active Substance: CYTARABINE
  4. HYDROCORTISONE. [Concomitant]
     Active Substance: HYDROCORTISONE

REACTIONS (6)
  - Colitis [None]
  - Hypoxia [None]
  - Tachypnoea [None]
  - Respiratory failure [None]
  - Haemophagocytic lymphohistiocytosis [None]
  - Febrile neutropenia [None]

NARRATIVE: CASE EVENT DATE: 20201118
